FAERS Safety Report 10332310 (Version 1)
Quarter: 2014Q3

REPORT INFORMATION
  Report Type: Spontaneous
  Country: US (occurrence: US)
  Receive Date: 20140722
  Receipt Date: 20140722
  Transmission Date: 20150326
  Serious: No
  Sender: FDA-Public Use
  Company Number: US-ASTRAZENECA-2014SE15905

PATIENT
  Age: 51 Year
  Sex: Female
  Weight: 65.3 kg

DRUGS (6)
  1. SEROQUEL [Suspect]
     Active Substance: QUETIAPINE FUMARATE
     Indication: BIPOLAR DISORDER
     Route: 048
  2. KLONOPIN [Concomitant]
     Active Substance: CLONAZEPAM
     Indication: OBSESSIVE-COMPULSIVE DISORDER
     Route: 048
     Dates: start: 201312
  3. SEROQUEL [Suspect]
     Active Substance: QUETIAPINE FUMARATE
     Indication: BIPOLAR DISORDER
     Dosage: PRESCRIBED 200 MG TWICE DAILY, BUT TAKES IT ONCE DAILY
     Route: 048
     Dates: start: 20140228
  4. KLONOPIN [Concomitant]
     Active Substance: CLONAZEPAM
     Indication: ANXIETY
     Route: 048
     Dates: start: 201312
  5. HYDROCODONE [Concomitant]
     Active Substance: HYDROCODONE
     Indication: PAIN
     Dosage: 7.5/325 MG PRN
     Route: 048
     Dates: start: 201309
  6. TRAZODONE [Concomitant]
     Active Substance: TRAZODONE HYDROCHLORIDE
     Indication: INSOMNIA
     Route: 048
     Dates: start: 201401

REACTIONS (9)
  - Mania [Unknown]
  - Somnolence [Unknown]
  - Confusional state [Unknown]
  - Impaired driving ability [Unknown]
  - Irritability [Not Recovered/Not Resolved]
  - Cognitive disorder [Unknown]
  - Intentional product misuse [Unknown]
  - Psychomotor hyperactivity [Unknown]
  - Insomnia [Unknown]

NARRATIVE: CASE EVENT DATE: 20140228
